FAERS Safety Report 8583310-6 (Version None)
Quarter: 2012Q3

REPORT INFORMATION
  Report Type: 
  Country: None (occurrence: None)
  Receive Date: 20120809
  Receipt Date: 20120802
  Transmission Date: 20120928
  Serious: Yes (Hospitalization, Other)
  Sender: FDA-Public Use
  Company Number: US-ABBOTT-12P-163-0965088-00

PATIENT
  Sex: Male
  Weight: 86.26 kg

DRUGS (3)
  1. IMODIUM [Concomitant]
     Indication: DIARRHOEA
     Dosage: PRN
  2. HUMIRA [Suspect]
     Indication: RHEUMATOID ARTHRITIS
  3. HUMIRA [Suspect]
     Indication: CROHN'S DISEASE
     Dates: start: 20070101, end: 20120721

REACTIONS (2)
  - CELLULITIS [None]
  - FISTULA [None]
